FAERS Safety Report 9232597 (Version 1)
Quarter: 2013Q2

REPORT INFORMATION
  Report Type: Spontaneous
  Country: TR (occurrence: None)
  Receive Date: 20130412
  Receipt Date: 20130412
  Transmission Date: 20140414
  Serious: Yes (Death)
  Sender: FDA-Public Use
  Company Number: FK201301055

PATIENT
  Age: 80 Year
  Sex: Male

DRUGS (5)
  1. AMIODARONE HCL [Suspect]
     Indication: VENTRICULAR TACHYCARDIA
     Route: 040
  2. CLOPIDOGREL (CLOPIDOGREL) [Concomitant]
  3. SPIRINOLACTONE [Concomitant]
  4. ACETYLSALICYLIC ACID (ACETYLSALICYLIC ACID) [Concomitant]
  5. AMLODIPINE (AMLODIPINE) [Concomitant]

REACTIONS (10)
  - Acute hepatic failure [None]
  - Renal failure [None]
  - Nausea [None]
  - Vomiting [None]
  - Dyspnoea [None]
  - Palpitations [None]
  - Disorientation [None]
  - Crepitations [None]
  - Rales [None]
  - Bundle branch block left [None]
